FAERS Safety Report 6023717-4 (Version None)
Quarter: 2008Q4

REPORT INFORMATION
  Report Type: 
  Country: None (occurrence: None)
  Receive Date: 20081223
  Receipt Date: 20081210
  Transmission Date: 20090506
  Serious: Yes (Other)
  Sender: FDA-Public Use
  Company Number: 2008S1012279

PATIENT
  Age: 76 Year
  Sex: Female

DRUGS (4)
  1. PHOSPHOSODA FLAVOR NOT SPECIFIED (SODIUM PHOSPHATE DIBASIC/SODIUM PHOS [Suspect]
     Dates: start: 20071108, end: 20071109
  2. BENDROFLUMETHIAZIDE (BENDROFLUMETHIAZIDE) [Concomitant]
  3. OLMESARTAN MEDOXOMIL [Concomitant]
  4. PROPRANOLOL [Concomitant]

REACTIONS (1)
  - RENAL FAILURE CHRONIC [None]
